FAERS Safety Report 18207271 (Version 1)
Quarter: 2020Q3

REPORT INFORMATION
  Report Type: Spontaneous
  Country: CA (occurrence: CA)
  Receive Date: 20200827
  Receipt Date: 20200827
  Transmission Date: 20201103
  Serious: No
  Sender: FDA-Public Use
  Company Number: None

PATIENT
  Age: 26 Year
  Sex: Female
  Weight: 72 kg

DRUGS (2)
  1. DYSPORT [Suspect]
     Active Substance: ABOBOTULINUMTOXINA
     Indication: SKIN WRINKLING
     Dates: start: 20191213, end: 20191220
  2. SYMBICORT [Concomitant]
     Active Substance: BUDESONIDE\FORMOTEROL FUMARATE DIHYDRATE

REACTIONS (11)
  - Extra dose administered [None]
  - Asthma [None]
  - Lid sulcus deepened [None]
  - Dyspnoea [None]
  - Eyelid ptosis [None]
  - Dry eye [None]
  - Swelling of eyelid [None]
  - Optic atrophy [None]
  - Illness [None]
  - Tremor [None]
  - Deformity [None]

NARRATIVE: CASE EVENT DATE: 20191213
